FAERS Safety Report 23390985 (Version 1)
Quarter: 2024Q1

REPORT INFORMATION
  Report Type: Report from Study
  Country: CO (occurrence: CO)
  Receive Date: 20240111
  Receipt Date: 20240111
  Transmission Date: 20240409
  Serious: Yes (Other)
  Sender: FDA-Public Use
  Company Number: CO-002147023-NVSC2022CO126667

PATIENT
  Age: 15 Year
  Sex: Female
  Weight: 56 kg

DRUGS (2)
  1. ILARIS [Suspect]
     Active Substance: CANAKINUMAB
     Indication: Hypergammaglobulinaemia
     Dosage: 150 MG, QMO
     Route: 058
     Dates: start: 20220311
  2. ILARIS [Suspect]
     Active Substance: CANAKINUMAB
     Indication: Mevalonate kinase deficiency

REACTIONS (16)
  - Colitis [Unknown]
  - Gastrointestinal pain [Recovering/Resolving]
  - Abdominal pain upper [Recovering/Resolving]
  - Abdominal pain [Recovering/Resolving]
  - Ill-defined disorder [Unknown]
  - Pyrexia [Unknown]
  - Condition aggravated [Unknown]
  - Illness [Unknown]
  - Synovial cyst [Unknown]
  - Myalgia [Unknown]
  - Cough [Unknown]
  - Pain [Unknown]
  - Rash macular [Unknown]
  - Nasopharyngitis [Unknown]
  - Arthralgia [Recovering/Resolving]
  - Malaise [Unknown]

NARRATIVE: CASE EVENT DATE: 20231210
